FAERS Safety Report 9857315 (Version 1)
Quarter: 2014Q1

REPORT INFORMATION
  Report Type: Spontaneous
  Country: US (occurrence: US)
  Receive Date: 20140130
  Receipt Date: 20140130
  Transmission Date: 20141002
  Serious: Yes (Hospitalization)
  Sender: FDA-Public Use
  Company Number: PHEH2014US002003

PATIENT
  Sex: Female

DRUGS (2)
  1. CLOZARIL [Suspect]
     Dosage: 500 MG, UNK
  2. CLOZARIL [Suspect]
     Dosage: 700 MG, UNK

REACTIONS (3)
  - Dyspnoea [Unknown]
  - Electrocardiogram change [Unknown]
  - Tachycardia [Unknown]
